FAERS Safety Report 4476877-0 (Version None)
Quarter: 2004Q4

REPORT INFORMATION
  Report Type: 
  Country: None (occurrence: None)
  Receive Date: 20041013
  Receipt Date: 20040928
  Transmission Date: 20050328
  Serious: Yes (Other)
  Sender: FDA-Public Use
  Company Number: 430037P04USA

PATIENT
  Age: 48 Year
  Sex: Female
  Weight: 47.6 kg

DRUGS (1)
  1. NOVANTRONE [Suspect]
     Indication: MULTIPLE SCLEROSIS
     Dosage: 16 MG, 1 IN 3 MONTHS, INTRAVENOUS
     Route: 042
     Dates: start: 20031107, end: 20031107

REACTIONS (1)
  - EJECTION FRACTION DECREASED [None]
